FAERS Safety Report 5470718-0 (Version None)
Quarter: 2007Q3

REPORT INFORMATION
  Report Type: 
  Country: None (occurrence: None)
  Receive Date: 20070928
  Receipt Date: 20070925
  Transmission Date: 20080115
  Serious: Yes (Other)
  Sender: FDA-Public Use
  Company Number: JP-AVENTIS-200712048JP

PATIENT
  Sex: Female

DRUGS (5)
  1. LANTUS [Suspect]
     Route: 048
     Dates: start: 20070522, end: 20070719
  2. OPTICLIK (INSULIN INJECTION PEN) [Suspect]
     Dates: start: 20070522, end: 20070719
  3. NOVORAPID [Concomitant]
  4. GLYBURIDE [Concomitant]
     Route: 048
  5. METFORMIN [Concomitant]
     Route: 048

REACTIONS (1)
  - LIVER FUNCTION TEST ABNORMAL [None]
